FAERS Safety Report 21359362 (Version 1)
Quarter: 2022Q3

REPORT INFORMATION
  Report Type: Spontaneous
  Country: DE (occurrence: DE)
  Receive Date: 20220921
  Receipt Date: 20220921
  Transmission Date: 20221026
  Serious: Yes (Hospitalization, Other)
  Sender: FDA-Public Use
  Company Number: DE-ROCHE-3169578

PATIENT
  Age: 74 Year
  Sex: Female

DRUGS (10)
  1. COMIRNATY [Interacting]
     Active Substance: TOZINAMERAN
     Indication: COVID-19 immunisation
     Dosage: DOSE 2, SINGLE
     Route: 065
     Dates: start: 202106, end: 202106
  2. COMIRNATY [Interacting]
     Active Substance: TOZINAMERAN
     Dosage: DOSE 1, SINGLE
     Route: 065
     Dates: start: 202104, end: 202104
  3. RITUXIMAB [Interacting]
     Active Substance: RITUXIMAB
     Indication: Systemic scleroderma
     Dosage: 6 PER MONTH, CYCLIC
     Route: 042
  4. MYCOPHENOLATE MOFETIL [Suspect]
     Active Substance: MYCOPHENOLATE MOFETIL
     Indication: Systemic scleroderma
     Route: 065
     Dates: end: 2017
  5. CHADOX1 NCOV-19 [Concomitant]
     Dates: start: 202107
  6. VALSARTAN AND HYDROCHLOROTHIAZIDE [Concomitant]
     Active Substance: HYDROCHLOROTHIAZIDE\VALSARTAN
     Dosage: UNK
  7. SILDENAFIL [Concomitant]
     Active Substance: SILDENAFIL
  8. LEVOTHYROXINE SODIUM [Concomitant]
     Active Substance: LEVOTHYROXINE SODIUM
     Dosage: UNK
  9. AMLODIPINE [Concomitant]
     Active Substance: AMLODIPINE BESYLATE
     Dosage: PER DAY
  10. CHOLECALCIFEROL [Concomitant]
     Active Substance: CHOLECALCIFEROL
     Dosage: UNK

REACTIONS (4)
  - Drug ineffective [Unknown]
  - COVID-19 pneumonia [Recovered/Resolved]
  - Drug interaction [Unknown]
  - Arthritis [Unknown]

NARRATIVE: CASE EVENT DATE: 20211201
